FAERS Safety Report 4995522-9 (Version None)
Quarter: 2006Q2

REPORT INFORMATION
  Report Type: 
  Country: None (occurrence: None)
  Receive Date: 20060504
  Receipt Date: 20060427
  Transmission Date: 20061013
  Serious: Yes (Hospitalization)
  Sender: FDA-Public Use
  Company Number: SUSI-2005-00827

PATIENT
  Age: 11 Year
  Sex: Male

DRUGS (2)
  1. ADDERALL XR (DEXTROAMPHETAMINE SULFATE, DEXTROAMPHETAMINE SACCHARATE, [Suspect]
     Dosage: 25 MG, 1X/DAY:QD; 50 MG IN THE MORNING
     Dates: start: 20050204, end: 20050101
  2. ADDERALL XR (DEXTROAMPHETAMINE SULFATE, DEXTROAMPHETAMINE SACCHARATE, [Suspect]
     Dosage: 25 MG, 1X/DAY:QD; 50 MG IN THE MORNING
     Dates: start: 20030106

REACTIONS (8)
  - DRUG INEFFECTIVE [None]
  - HOMICIDAL IDEATION [None]
  - OPPOSITIONAL DEFIANT DISORDER [None]
  - PRESCRIBED OVERDOSE [None]
  - PSYCHOTIC DISORDER [None]
  - SELF INJURIOUS BEHAVIOUR [None]
  - SUICIDAL IDEATION [None]
  - SUICIDE ATTEMPT [None]
